FAERS Safety Report 16926581 (Version 2)
Quarter: 2020Q1

REPORT INFORMATION
  Report Type: Report from Study
  Country: US (occurrence: US)
  Receive Date: 20191016
  Receipt Date: 20200227
  Transmission Date: 20200409
  Serious: No
  Sender: FDA-Public Use
  Company Number: US-SA-2019SA280772

PATIENT
  Age: 54 Year
  Sex: Female

DRUGS (1)
  1. TERIFLUNOMIDE. [Suspect]
     Active Substance: TERIFLUNOMIDE
     Indication: MULTIPLE SCLEROSIS
     Dosage: 7 MG, QD
     Route: 048
     Dates: start: 201909

REACTIONS (4)
  - Oropharyngeal pain [Unknown]
  - Depression [Not Recovered/Not Resolved]
  - Rhinorrhoea [Unknown]
  - Throat clearing [Unknown]

NARRATIVE: CASE EVENT DATE: 202002
